FAERS Safety Report 5797362-X (Version None)
Quarter: 2008Q3

REPORT INFORMATION
  Report Type: 
  Country: None (occurrence: None)
  Receive Date: 20080701
  Receipt Date: 20080623
  Transmission Date: 20090109
  Serious: No
  Sender: FDA-Public Use
  Company Number: US-BOEHRINGER INGELHEIM GMBH, GERMANY-2008-BP-09810BP

PATIENT
  Age: 75 Year
  Sex: Male

DRUGS (20)
  1. FLOMAX [Suspect]
     Indication: URINARY RETENTION
     Route: 048
     Dates: end: 20080601
  2. BOTOX [Concomitant]
     Indication: DYSTONIA
  3. CORTISONE INJECTIONS [Concomitant]
     Indication: TRIGGER FINGER
  4. CYMBALTA [Concomitant]
     Indication: DEPRESSION
  5. DIGOXIN [Concomitant]
     Indication: CARDIAC DISORDER
  6. FUROSEMIDE [Concomitant]
     Indication: CARDIAC DISORDER
  7. COUMADIN [Concomitant]
     Indication: ATRIAL FIBRILLATION
  8. ASPIRIN [Concomitant]
  9. LIDODERM [Concomitant]
     Indication: SPINAL COLUMN STENOSIS
  10. LYRICA [Concomitant]
     Indication: PAIN
  11. METOPROLOL SUCCINATE [Concomitant]
     Indication: HYPERTENSION
  12. NEXIUM [Concomitant]
     Indication: STOMACH DISCOMFORT
  13. PRANDIN [Concomitant]
     Indication: DIABETES MELLITUS
  14. QUINAPRIL [Concomitant]
     Indication: HYPERTENSION
  15. SIMVASTATIN [Concomitant]
     Indication: BLOOD CHOLESTEROL INCREASED
  16. SPIRONOLACTONE [Concomitant]
     Indication: HYPERTENSION
  17. XALATAN [Concomitant]
     Indication: GLAUCOMA
  18. XETIA [Concomitant]
     Indication: BLOOD CHOLESTEROL INCREASED
  19. ALPHAGAN [Concomitant]
     Indication: GLAUCOMA
  20. AMLODIPINE [Concomitant]
     Indication: HYPERTENSION

REACTIONS (1)
  - PRURITUS GENERALISED [None]
